FAERS Safety Report 5248667-2 (Version None)
Quarter: 2007Q1

REPORT INFORMATION
  Report Type: 
  Country: None (occurrence: None)
  Receive Date: 20070227
  Receipt Date: 20070227
  Transmission Date: 20070707
  Serious: Yes (Hospitalization)
  Sender: FDA-Public Use
  Company Number: None

PATIENT
  Sex: Female
  Weight: 82.3 kg

DRUGS (2)
  1. CYCLOPHOSPHAMIDE [Suspect]
     Dosage: 1122 MG
  2. DOXORUBICIN HYDROCHLORIDE [Suspect]
     Dosage: 112 MG

REACTIONS (7)
  - ABDOMINAL PAIN LOWER [None]
  - DRUG TOXICITY [None]
  - EAR PAIN [None]
  - FEBRILE NEUTROPENIA [None]
  - NEUTROPHIL COUNT ABNORMAL [None]
  - UPPER RESPIRATORY TRACT INFECTION [None]
  - WHITE BLOOD CELL COUNT ABNORMAL [None]
